FAERS Safety Report 18182180 (Version 10)
Quarter: 2022Q4

REPORT INFORMATION
  Report Type: Spontaneous
  Country: US (occurrence: US)
  Receive Date: 20200821
  Receipt Date: 20221230
  Transmission Date: 20230113
  Serious: Yes (Life-Threatening, Hospitalization, Disabling, Other)
  Sender: FDA-Public Use
  Company Number: US-AMERICAN REGENT INC-2020001711

PATIENT
  Age: 37 Year
  Sex: Female
  Weight: 72.562 kg

DRUGS (6)
  1. FERRIC CARBOXYMALTOSE [Suspect]
     Active Substance: FERRIC CARBOXYMALTOSE
     Indication: Blood iron decreased
     Dosage: 750 MILLIGRAM, SINGLE, WEEKLY FOR TWO WEEKS
     Route: 042
     Dates: start: 20200403, end: 20200403
  2. FERRIC CARBOXYMALTOSE [Suspect]
     Active Substance: FERRIC CARBOXYMALTOSE
     Indication: Iron deficiency anaemia
     Dosage: 750 UNK, SINGLE, WEEKLY FOR TWO WEEKS
     Route: 042
     Dates: start: 20200409, end: 20200409
  3. SOLU-MEDROL [Suspect]
     Active Substance: METHYLPREDNISOLONE SODIUM SUCCINATE
     Indication: Adverse reaction
     Dosage: 125 MILLIGRAM, SINGLE
     Route: 042
     Dates: start: 20200409, end: 20200409
  4. ERGOCALCIFEROL [Concomitant]
     Active Substance: ERGOCALCIFEROL
     Indication: Vitamin D deficiency
     Dosage: 50000 INTERNATIONAL UNIT ONCE A WEEK
     Route: 048
     Dates: start: 20200401, end: 20200622
  5. LEVOTHYROXINE [Concomitant]
     Active Substance: LEVOTHYROXINE
     Indication: Hypothyroidism
     Dosage: 150 MICROGRAM, QD BEFORE BREAKFAST
     Route: 048
     Dates: start: 20200331
  6. ZINC GLUCONATE [Concomitant]
     Active Substance: ZINC GLUCONATE
     Indication: Zinc deficiency
     Dosage: 50 MILLIGRAM, QD
     Route: 048
     Dates: start: 20200403, end: 20201202

REACTIONS (18)
  - Malaise [Recovered/Resolved]
  - Cortisol increased [Recovered/Resolved]
  - Pain in extremity [Not Recovered/Not Resolved]
  - Myalgia [Recovered/Resolved]
  - Emotional distress [Not Recovered/Not Resolved]
  - Pain [Not Recovered/Not Resolved]
  - Chest pain [Recovered/Resolved]
  - Hypophosphataemia [Recovered/Resolved]
  - Headache [Recovered/Resolved]
  - Dyspnoea [Recovered/Resolved]
  - Chest discomfort [Recovered/Resolved]
  - Palpitations [Recovered/Resolved]
  - Rash [Recovered/Resolved]
  - Anhedonia [Not Recovered/Not Resolved]
  - Partner stress [Not Recovered/Not Resolved]
  - Urticaria [Recovered/Resolved]
  - Inappropriate schedule of product administration [Recovered/Resolved]
  - Product quality issue [Unknown]

NARRATIVE: CASE EVENT DATE: 20200401
